FAERS Safety Report 7288706-0 (Version None)
Quarter: 2011Q1

REPORT INFORMATION
  Report Type: 
  Country: None (occurrence: None)
  Receive Date: 20110211
  Receipt Date: 20110201
  Transmission Date: 20110831
  Serious: Yes (Hospitalization, Other)
  Sender: FDA-Public Use
  Company Number: PHHY2010FR38025

PATIENT
  Sex: Female
  Weight: 65 kg

DRUGS (2)
  1. SPRYCEL [Suspect]
     Dosage: 50 MG DAILY
     Dates: start: 20080501
  2. GLEEVEC [Suspect]
     Indication: CHRONIC MYELOID LEUKAEMIA
     Dates: start: 20040506, end: 20080528

REACTIONS (5)
  - TRANSIENT ISCHAEMIC ATTACK [None]
  - APHASIA [None]
  - DYSARTHRIA [None]
  - HEADACHE [None]
  - ARTERIOSCLEROSIS [None]
